FAERS Safety Report 5167108-7 (Version None)
Quarter: 2006Q4

REPORT INFORMATION
  Report Type: 
  Country: None (occurrence: None)
  Receive Date: 20061207
  Receipt Date: 20061019
  Transmission Date: 20070319
  Serious: Yes (Death, Life-Threatening, Hospitalization, Other)
  Sender: FDA-Public Use
  Company Number: FR-GLAXOSMITHKLINE-B0443807A

PATIENT
  Age: 71 Year
  Sex: Female

DRUGS (1)
  1. ZELITREX [Suspect]
     Indication: HERPES ZOSTER
     Dosage: 500MG TWICE PER DAY
     Route: 048
     Dates: start: 20051005, end: 20051007

REACTIONS (10)
  - ARRHYTHMIA [None]
  - CARDIAC FAILURE [None]
  - COMA [None]
  - DYSARTHRIA [None]
  - HAEMODYNAMIC INSTABILITY [None]
  - HALLUCINATION [None]
  - MYOCLONUS [None]
  - NERVOUS SYSTEM DISORDER [None]
  - OVERDOSE [None]
  - SHOCK [None]
